FAERS Safety Report 5659600-3 (Version None)
Quarter: 2008Q1

REPORT INFORMATION
  Report Type: 
  Country: None (occurrence: None)
  Receive Date: 20080311
  Receipt Date: 20080225
  Transmission Date: 20080703
  Serious: Yes (Hospitalization)
  Sender: FDA-Public Use
  Company Number: PHHO1995DE03383

PATIENT
  Age: 35 Year
  Sex: Female
  Weight: 52 kg

DRUGS (2)
  1. SDZ HTF 919  VS. PLACEBO [Suspect]
     Indication: GASTROINTESTINAL DISORDER
     Dosage: 0.5 MG, BID
     Route: 048
     Dates: start: 19950502, end: 19950605
  2. MARVELON [Concomitant]
     Indication: PREGNANCY ON ORAL CONTRACEPTIVE
     Route: 048

REACTIONS (1)
  - HYPOGLYCAEMIA [None]
